FAERS Safety Report 8110592-7 (Version None)
Quarter: 2012Q1

REPORT INFORMATION
  Report Type: 
  Country: None (occurrence: None)
  Receive Date: 20120203
  Receipt Date: 20120130
  Transmission Date: 20120608
  Serious: No
  Sender: FDA-Public Use
  Company Number: US-PFIZER INC-2012025686

PATIENT
  Sex: Male
  Weight: 77.098 kg

DRUGS (5)
  1. MOTRIN [Suspect]
     Indication: FIBROMYALGIA
     Dosage: UNK
  2. LYRICA [Suspect]
     Dosage: 200 MG, 2X/DAY
  3. NEURONTIN [Suspect]
     Indication: FIBROMYALGIA
     Dosage: 600 MG, 3X/DAY
  4. VICODIN [Suspect]
     Indication: FIBROMYALGIA
  5. LYRICA [Suspect]
     Indication: FIBROMYALGIA
     Dosage: 200 MG, 3X/DAY

REACTIONS (5)
  - MUSCULOSKELETAL DISCOMFORT [None]
  - EATING DISORDER [None]
  - DRUG INEFFECTIVE [None]
  - INSOMNIA [None]
  - DISCOMFORT [None]
